FAERS Safety Report 5872297-2 (Version None)
Quarter: 2008Q3

REPORT INFORMATION
  Report Type: 
  Country: None (occurrence: None)
  Receive Date: 20080905
  Receipt Date: 20080825
  Transmission Date: 20090109
  Serious: Yes (Other)
  Sender: FDA-Public Use
  Company Number: TR-GENENTECH-266887

PATIENT
  Sex: Female
  Weight: 92 kg

DRUGS (1)
  1. XOLAIR [Suspect]
     Indication: ASTHMA
     Dosage: 225 MG, UNK
     Route: 058
     Dates: start: 20080821

REACTIONS (2)
  - BLOOD IMMUNOGLOBULIN E INCREASED [None]
  - LIP SWELLING [None]
